FAERS Safety Report 14194102 (Version 1)
Quarter: 2017Q4

REPORT INFORMATION
  Report Type: Spontaneous
  Country: AU (occurrence: AU)
  Receive Date: 20171116
  Receipt Date: 20171116
  Transmission Date: 20180321
  Serious: Yes (Hospitalization, Other)
  Sender: FDA-Public Use
  Company Number: AU-CIPLA LTD.-2017AU20171

PATIENT

DRUGS (1)
  1. ZOLEDRONIC ACID [Suspect]
     Active Substance: ZOLEDRONIC ACID
     Indication: OSTEITIS DEFORMANS
     Dosage: UNK, 5 MG IN 100 ML OF INFUSION
     Route: 041

REACTIONS (4)
  - Malaise [Unknown]
  - Myalgia [Unknown]
  - Uveitis [Recovered/Resolved]
  - Conjunctival haemorrhage [Recovered/Resolved]
